FAERS Safety Report 17227903 (Version 9)
Quarter: 2021Q2

REPORT INFORMATION
  Report Type: Report from Study
  Country: None (occurrence: US)
  Receive Date: 20200103
  Receipt Date: 20210408
  Transmission Date: 20210716
  Serious: Yes (Hospitalization)
  Sender: FDA-Public Use
  Company Number: US-ABBVIE-19K-163-3133639-00

PATIENT
  Age: 76 Year
  Sex: Male

DRUGS (17)
  1. IMBRUVICA [Suspect]
     Active Substance: IBRUTINIB
     Route: 048
     Dates: start: 20190108
  2. IMBRUVICA [Suspect]
     Active Substance: IBRUTINIB
     Route: 048
     Dates: start: 20190104
  3. IMATINIB. [Suspect]
     Active Substance: IMATINIB MESYLATE
     Dosage: 400 MG, QD
     Route: 048
     Dates: start: 20160926
  4. IMBRUVICA [Suspect]
     Active Substance: IBRUTINIB
     Route: 048
     Dates: start: 201901
  5. IMATINIB. [Suspect]
     Active Substance: IMATINIB MESYLATE
     Route: 065
     Dates: start: 20160511
  6. IMBRUVICA [Suspect]
     Active Substance: IBRUTINIB
     Indication: CHRONIC LYMPHOCYTIC LEUKAEMIA
     Route: 048
     Dates: start: 20190203, end: 20190208
  7. INMUNOGLOBULIN G [Suspect]
     Active Substance: HUMAN IMMUNOGLOBULIN G
     Indication: PRODUCT USED FOR UNKNOWN INDICATION
     Dosage: UNK
     Route: 065
     Dates: start: 20190204
  8. COVID?19 VACCINE NOS. [Suspect]
     Active Substance: COVID-19 VACCINE NOS
     Indication: COVID-19 IMMUNISATION
     Dosage: FIRST SHOT
     Route: 030
  9. IMBRUVICA [Suspect]
     Active Substance: IBRUTINIB
     Indication: CHRONIC MYELOID LEUKAEMIA
     Route: 048
     Dates: start: 20190208
  10. IMBRUVICA [Suspect]
     Active Substance: IBRUTINIB
     Route: 048
     Dates: start: 20200312
  11. IMBRUVICA [Suspect]
     Active Substance: IBRUTINIB
     Route: 048
     Dates: start: 20190130
  12. IMBRUVICA [Suspect]
     Active Substance: IBRUTINIB
     Route: 048
  13. IMBRUVICA [Suspect]
     Active Substance: IBRUTINIB
     Route: 048
     Dates: start: 20190107, end: 20190312
  14. IMATINIB. [Suspect]
     Active Substance: IMATINIB MESYLATE
     Indication: CHRONIC LYMPHOCYTIC LEUKAEMIA
     Dosage: 400 MG, QD
     Route: 048
     Dates: start: 201609
  15. IMBRUVICA [Suspect]
     Active Substance: IBRUTINIB
     Indication: CHRONIC LYMPHOCYTIC LEUKAEMIA
     Route: 048
     Dates: start: 20190108
  16. IMBRUVICA [Suspect]
     Active Substance: IBRUTINIB
     Route: 048
     Dates: start: 10290203
  17. IMBRUVICA [Suspect]
     Active Substance: IBRUTINIB
     Route: 048
     Dates: start: 20190104

REACTIONS (24)
  - Immobile [Unknown]
  - Laboratory test abnormal [Recovering/Resolving]
  - Asthenia [Unknown]
  - Incorrect dose administered [Unknown]
  - Staphylococcal infection [Not Recovered/Not Resolved]
  - Urinary tract infection staphylococcal [Not Recovered/Not Resolved]
  - Fluid retention [Recovered/Resolved]
  - Skin tightness [Unknown]
  - Cough [Unknown]
  - Clostridium difficile infection [Unknown]
  - Muscle atrophy [Unknown]
  - Hypersomnia [Not Recovered/Not Resolved]
  - Cystitis [Not Recovered/Not Resolved]
  - Decreased appetite [Unknown]
  - Hypotension [Unknown]
  - Rash [Unknown]
  - Weight increased [Unknown]
  - Wound [Recovering/Resolving]
  - Oedema peripheral [Unknown]
  - Fatigue [Unknown]
  - Urinary tract infection [Unknown]
  - COVID-19 [Unknown]
  - White blood cell count increased [Unknown]
  - Muscular weakness [Unknown]

NARRATIVE: CASE EVENT DATE: 20190108
